FAERS Safety Report 6080139-8 (Version None)
Quarter: 2009Q1

REPORT INFORMATION
  Report Type: 
  Country: None (occurrence: None)
  Receive Date: 20090217
  Receipt Date: 20090205
  Transmission Date: 20090719
  Serious: Yes (Other)
  Sender: FDA-Public Use
  Company Number: JP-PFIZER INC-2009167886

PATIENT

DRUGS (2)
  1. GABAPEN [Suspect]
     Route: 048
  2. DRUG, UNSPECIFIED [Concomitant]

REACTIONS (1)
  - NEOPLASM MALIGNANT [None]
